FAERS Safety Report 6038673-2 (Version None)
Quarter: 2009Q1

REPORT INFORMATION
  Report Type: 
  Country: None (occurrence: None)
  Receive Date: 20090115
  Receipt Date: 20081106
  Transmission Date: 20090719
  Serious: No
  Sender: FDA-Public Use
  Company Number: US-BAYER-200814314BCC

PATIENT
  Sex: Male

DRUGS (3)
  1. FINACEA [Suspect]
     Indication: ACNE
     Route: 061
  2. CETAPHIL DAILY FACIAL CLEANSER [Suspect]
     Indication: DRUG USE FOR UNKNOWN INDICATION
  3. CETAPHIL DAILY FACIAL MOISTURIZER [Suspect]
     Indication: DRUG USE FOR UNKNOWN INDICATION

REACTIONS (1)
  - ACNE [None]
